FAERS Safety Report 22061420 (Version 3)
Quarter: 2024Q2

REPORT INFORMATION
  Report Type: Spontaneous
  Country: US (occurrence: US)
  Receive Date: 20230304
  Receipt Date: 20240530
  Transmission Date: 20240716
  Serious: No
  Sender: FDA-Public Use
  Company Number: US-GSK-US2023AMR033281

PATIENT
  Sex: Female

DRUGS (14)
  1. SUMATRIPTAN SUCCINATE [Interacting]
     Active Substance: SUMATRIPTAN SUCCINATE
     Indication: Product used for unknown indication
     Dosage: UNK; 2-UD SYRINGE , KIT
  2. SUMATRIPTAN SUCCINATE [Interacting]
     Active Substance: SUMATRIPTAN SUCCINATE
  3. SUMATRIPTAN SUCCINATE [Suspect]
     Active Substance: SUMATRIPTAN SUCCINATE
     Indication: Product used for unknown indication
     Dosage: UNK
  4. SUMATRIPTAN SUCCINATE [Suspect]
     Active Substance: SUMATRIPTAN SUCCINATE
  5. SUMATRIPTAN SUCCINATE [Suspect]
     Active Substance: SUMATRIPTAN SUCCINATE
  6. SUMATRIPTAN SUCCINATE [Interacting]
     Active Substance: SUMATRIPTAN SUCCINATE
     Indication: Product used for unknown indication
     Dosage: UNK
  7. SUMATRIPTAN SUCCINATE [Interacting]
     Active Substance: SUMATRIPTAN SUCCINATE
  8. SUMATRIPTAN SUCCINATE [Interacting]
     Active Substance: SUMATRIPTAN SUCCINATE
  9. SUMATRIPTAN SUCCINATE [Interacting]
     Active Substance: SUMATRIPTAN SUCCINATE
  10. SUMATRIPTAN SUCCINATE [Suspect]
     Active Substance: SUMATRIPTAN SUCCINATE
     Indication: Product used for unknown indication
     Dosage: UNK
  11. SUMATRIPTAN SUCCINATE [Suspect]
     Active Substance: SUMATRIPTAN SUCCINATE
  12. SUMATRIPTAN SUCCINATE [Suspect]
     Active Substance: SUMATRIPTAN SUCCINATE
  13. SUMATRIPTAN SUCCINATE [Suspect]
     Active Substance: SUMATRIPTAN SUCCINATE
  14. SUMATRIPTAN SUCCINATE [Suspect]
     Active Substance: SUMATRIPTAN SUCCINATE

REACTIONS (3)
  - Drug ineffective [Unknown]
  - Product dose omission issue [Unknown]
  - Product complaint [Unknown]
